FAERS Safety Report 4903514-0 (Version None)
Quarter: 2006Q1

REPORT INFORMATION
  Report Type: 
  Country: None (occurrence: None)
  Receive Date: 20060206
  Receipt Date: 20060206
  Transmission Date: 20060701
  Serious: No
  Sender: FDA-Public Use
  Company Number: None

PATIENT
  Age: 32 Year
  Sex: Female
  Weight: 42 kg

DRUGS (1)
  1. AMIKACIN [Suspect]
     Indication: TUBERCULOSIS
     Dosage: 740 MG IV Q D 5X WK
     Route: 042
     Dates: start: 20050808

REACTIONS (1)
  - TINNITUS [None]
